FAERS Safety Report 5487714-X (Version None)
Quarter: 2007Q4

REPORT INFORMATION
  Report Type: 
  Country: None (occurrence: None)
  Receive Date: 20071015
  Receipt Date: 20071015
  Transmission Date: 20080405
  Serious: Yes (Other)
  Sender: FDA-Public Use
  Company Number: None

PATIENT
  Sex: Female

DRUGS (1)
  1. ALBUTEROL SULFATE (BRONCHODILATOR);HUMAN-RX/SINGLE INGREDIENT;AEROSOL [Suspect]
     Dates: start: 20061130, end: 20061201

REACTIONS (2)
  - DEVICE MALFUNCTION [None]
  - DRUG EFFECT DECREASED [None]
